FAERS Safety Report 7464419-7 (Version None)
Quarter: 2011Q2

REPORT INFORMATION
  Report Type: 
  Country: None (occurrence: None)
  Receive Date: 20110509
  Receipt Date: 20110504
  Transmission Date: 20111010
  Serious: No
  Sender: FDA-Public Use
  Company Number: US-PFIZER INC-2011062912

PATIENT
  Sex: Female

DRUGS (8)
  1. LYRICA [Suspect]
     Dosage: 100 MG, 2X/DAY
     Route: 048
     Dates: start: 20101209, end: 20110301
  2. LYRICA [Suspect]
     Dosage: 150 MG, 2X/DAY
     Dates: start: 20110301, end: 20110101
  3. LISINOPRIL [Concomitant]
     Indication: HYPERTENSION
     Dosage: 5 MG, 1X/DAY
     Route: 048
  4. LYRICA [Suspect]
     Indication: NEURALGIA
     Dosage: 3-4 CAPSULES OF 25MG, TWICE DAILY
     Route: 048
     Dates: end: 20101208
  5. CYCLOBENZAPRINE [Concomitant]
     Indication: MUSCLE SPASMS
     Dosage: 10MG EVERY 8 HOURS AS NEEDED
     Route: 048
     Dates: end: 20110101
  6. MILNACIPRAN HYDROCHLORIDE [Concomitant]
     Indication: NEURALGIA
     Dosage: UNK
     Route: 048
  7. VITAMIN D [Concomitant]
     Dosage: 5000 UNK,
  8. FLEXERIL [Concomitant]
     Dosage: 10 MG, AS NEEDED (PRN)

REACTIONS (1)
  - DRUG INEFFECTIVE [None]
